FAERS Safety Report 22536718 (Version 1)
Quarter: 2023Q2

REPORT INFORMATION
  Report Type: Spontaneous
  Country: IR (occurrence: IR)
  Receive Date: 20230608
  Receipt Date: 20230608
  Transmission Date: 20230722
  Serious: Yes (Life-Threatening, Hospitalization, Other)
  Sender: FDA-Public Use
  Company Number: IR-SUN PHARMACEUTICAL INDUSTRIES LTD-2023R1-392106

PATIENT
  Age: 24 Year
  Sex: Female

DRUGS (1)
  1. DALFAMPRIDINE [Suspect]
     Active Substance: DALFAMPRIDINE
     Indication: Product used for unknown indication
     Dosage: 1 0 MILLIGRAM 12 TABLETS
     Route: 065

REACTIONS (7)
  - Status epilepticus [Unknown]
  - Toxicity to various agents [Unknown]
  - Oxygen saturation decreased [Recovered/Resolved]
  - Intentional overdose [Unknown]
  - Suicide attempt [Unknown]
  - Hyperhidrosis [Recovered/Resolved]
  - Delirium [Unknown]
